FAERS Safety Report 18991645 (Version 1)
Quarter: 2021Q1

REPORT INFORMATION
  Report Type: Spontaneous
  Country: US (occurrence: US)
  Receive Date: 20210310
  Receipt Date: 20210310
  Transmission Date: 20210420
  Serious: No
  Sender: FDA-Public Use
  Company Number: US-TEVA-2021-US-1889130

PATIENT
  Sex: Female
  Weight: 78.01 kg

DRUGS (3)
  1. FLECAINIDE [Suspect]
     Active Substance: FLECAINIDE
     Route: 065
     Dates: start: 202005
  2. PROPRANOLOL [Suspect]
     Active Substance: PROPRANOLOL HYDROCHLORIDE
     Route: 065
     Dates: start: 202005, end: 20200625
  3. ELIQUIS [Suspect]
     Active Substance: APIXABAN
     Route: 065
     Dates: start: 202005

REACTIONS (2)
  - Blood pressure decreased [Unknown]
  - Procedural failure [Unknown]

NARRATIVE: CASE EVENT DATE: 20200625
